FAERS Safety Report 6883780-5 (Version None)
Quarter: 2010Q3

REPORT INFORMATION
  Report Type: 
  Country: None (occurrence: None)
  Receive Date: 20100729
  Receipt Date: 20100723
  Transmission Date: 20110219
  Serious: Yes (Hospitalization)
  Sender: FDA-Public Use
  Company Number: DE-BRISTOL-MYERS SQUIBB COMPANY-15209661

PATIENT
  Age: 61 Year
  Sex: Male
  Weight: 56 kg

DRUGS (3)
  1. CETUXIMAB [Suspect]
     Indication: GASTRIC CANCER
     Dosage: STRENGTH 2MG/ML.MOST RECENT INFUSION ON 30JUN2010
     Route: 042
     Dates: start: 20100414
  2. CISPLATIN [Suspect]
     Indication: GASTRIC CANCER
     Dosage: MOST RECENT INFUSION ON 16JUN2010
     Route: 042
     Dates: start: 20100414
  3. TAXOTERE [Suspect]
     Indication: GASTRIC CANCER
     Dosage: MOST RECENT INFUSION ON 16JUN2010
     Route: 042
     Dates: start: 20100414

REACTIONS (2)
  - DEEP VEIN THROMBOSIS [None]
  - PERIPHERAL ARTERIAL OCCLUSIVE DISEASE [None]
